FAERS Safety Report 8053903-3 (Version None)
Quarter: 2012Q1

REPORT INFORMATION
  Report Type: 
  Country: None (occurrence: None)
  Receive Date: 20120118
  Receipt Date: 20120112
  Transmission Date: 20120608
  Serious: Yes (Death)
  Sender: FDA-Public Use
  Company Number: JP-ELI_LILLY_AND_COMPANY-JP201201001551

PATIENT
  Age: 85 Year
  Sex: Male

DRUGS (10)
  1. LANSOPRAZOLE [Concomitant]
     Route: 048
  2. PURSENNID                          /00571902/ [Concomitant]
     Dosage: 3 DF, UNK
     Route: 048
  3. HUMALOG MIX 50/50 [Suspect]
     Dosage: UNK, 6 UNITS EACH IN THE MORNING AND EVENING
     Dates: start: 20111215
  4. CALCIUM CARBONATE [Concomitant]
     Route: 048
  5. BASEN [Concomitant]
     Route: 048
  6. ASPIRIN [Concomitant]
     Route: 048
  7. LASIX [Concomitant]
     Dosage: 40 MG, UNK
     Route: 048
  8. LIVALO [Concomitant]
     Dosage: 2 MG, UNK
     Route: 048
  9. ALFAROL [Concomitant]
     Route: 048
  10. FOSRENOL [Concomitant]
     Dosage: 750 MG, UNK
     Route: 048

REACTIONS (1)
  - MYOCARDIAL INFARCTION [None]
